FAERS Safety Report 19063802 (Version 1)
Quarter: 2021Q1

REPORT INFORMATION
  Report Type: Spontaneous
  Country: HR (occurrence: HR)
  Receive Date: 20210326
  Receipt Date: 20210326
  Transmission Date: 20210420
  Serious: Yes (Other)
  Sender: FDA-Public Use
  Company Number: HR-ANIPHARMA-2021-HR-000002

PATIENT
  Sex: Female

DRUGS (5)
  1. ANASTROZOLE. [Suspect]
     Active Substance: ANASTROZOLE
     Indication: BREAST CANCER
     Route: 048
  2. TAMOXIFEN [Suspect]
     Active Substance: TAMOXIFEN
     Route: 048
  3. FULVESTRANT. [Suspect]
     Active Substance: FULVESTRANT
     Route: 030
  4. CMF [CYCLOPHOSPHAMIDE\FLUOROURACIL\METHOTREXATE] [Suspect]
     Active Substance: CYCLOPHOSPHAMIDE\FLUOROURACIL\METHOTREXATE
     Route: 065
  5. DOCETAXEL. [Suspect]
     Active Substance: DOCETAXEL
     Route: 048

REACTIONS (1)
  - Metastases to bone [Unknown]

NARRATIVE: CASE EVENT DATE: 2015
